FAERS Safety Report 7460448-8 (Version None)
Quarter: 2011Q2

REPORT INFORMATION
  Report Type: 
  Country: None (occurrence: None)
  Receive Date: 20110505
  Receipt Date: 20110419
  Transmission Date: 20111010
  Serious: Yes (Other)
  Sender: FDA-Public Use
  Company Number: B0717137A

PATIENT
  Sex: Male

DRUGS (3)
  1. LAMOTRIGINE [Suspect]
     Route: 065
     Dates: start: 20000101, end: 20090101
  2. LACOSAMIDE [Suspect]
     Route: 065
  3. LEVETIRACETAM [Suspect]
     Route: 065
     Dates: start: 20030101, end: 20090101

REACTIONS (1)
  - COMPLEX PARTIAL SEIZURES [None]
